FAERS Safety Report 23606827 (Version 1)
Quarter: 2024Q1

REPORT INFORMATION
  Report Type: Spontaneous
  Country: US (occurrence: None)
  Receive Date: 20240307
  Receipt Date: 20240307
  Transmission Date: 20240410
  Serious: Yes (Hospitalization)
  Sender: FDA-Public Use
  Company Number: None

PATIENT
  Age: 57 Year
  Sex: Female
  Weight: 93.15 kg

DRUGS (1)
  1. WEGOVY [Suspect]
     Active Substance: SEMAGLUTIDE
     Indication: Weight decreased
     Dosage: OTHER QUANTITY : 1 INJECTION(S);?OTHER FREQUENCY : WEEKLY;?OTHER ROUTE : INTO THE STOMACH;?
     Route: 050
     Dates: start: 20230601, end: 20231101

REACTIONS (3)
  - Cholelithiasis [None]
  - Gallbladder disorder [None]
  - Pancreatitis [None]

NARRATIVE: CASE EVENT DATE: 20240106
